FAERS Safety Report 4647960-1 (Version None)
Quarter: 2005Q2

REPORT INFORMATION
  Report Type: 
  Country: None (occurrence: None)
  Receive Date: 20050428
  Receipt Date: 20050201
  Transmission Date: 20051028
  Serious: Yes (Life-Threatening, Hospitalization, Other)
  Sender: FDA-Public Use
  Company Number: JP-ABBOTT-05P-087-0289425-00

PATIENT
  Age: 25 Year
  Sex: Male
  Weight: 69 kg

DRUGS (12)
  1. CLARITHROMYCIN [Suspect]
     Indication: NASOPHARYNGITIS
     Dosage: NOT REPORTED
     Route: 048
     Dates: start: 20050124, end: 20050125
  2. HUSCODE [Suspect]
     Indication: NASOPHARYNGITIS
     Dosage: NOT REPORTED
     Route: 048
     Dates: start: 20050126, end: 20050126
  3. HUSCODE [Suspect]
     Indication: COUGH
  4. SALICYLAMIDE/ACETAMINOPHEN/ANHYDROUS CAFFEINE/PROMETHAZINE METHYLENEDI [Suspect]
     Indication: PYREXIA
     Dosage: NOT REPORTED
     Dates: start: 20050124, end: 20050125
  5. IBUPROFEN [Suspect]
     Indication: PYREXIA
     Dosage: NOT REPORTED
     Route: 048
     Dates: start: 20050126, end: 20050126
  6. SHIN HAYANA [Suspect]
     Indication: NASOPHARYNGITIS
     Dosage: NOT REPORTED
     Route: 048
     Dates: start: 20050122, end: 20050124
  7. SHIN HAYANA [Suspect]
     Indication: PYREXIA
  8. SHIN HAYANA [Suspect]
  9. CARBOCISTEINE [Suspect]
     Indication: NASOPHARYNGITIS
     Dosage: NOT REPORTED
     Route: 048
     Dates: start: 20050124, end: 20050126
  10. CARBOCISTEINE [Suspect]
     Indication: PYREXIA
  11. CEFCAPENE PIVOXIL HYDROCHLORIDE [Suspect]
     Indication: NASOPHARYNGITIS
     Dosage: NOT REPORTED
     Route: 048
     Dates: start: 20050126, end: 20050126
  12. CEFCAPENE PIVOXIL HYDROCHLORIDE [Suspect]
     Indication: PYREXIA

REACTIONS (7)
  - ACUTE GENERALISED EXANTHEMATOUS PUSTULOSIS [None]
  - BACTERIAL INFECTION [None]
  - EPSTEIN-BARR VIRUS ANTIBODY POSITIVE [None]
  - NEUTROPHIL PERCENTAGE DECREASED [None]
  - PYREXIA [None]
  - TOXIC SKIN ERUPTION [None]
  - VIRAL INFECTION [None]
